FAERS Safety Report 8515827-4 (Version None)
Quarter: 2012Q3

REPORT INFORMATION
  Report Type: 
  Country: None (occurrence: None)
  Receive Date: 20120717
  Receipt Date: 20120702
  Transmission Date: 20120928
  Serious: Yes (Other)
  Sender: FDA-Public Use
  Company Number: US-009507513-2012SP026106

PATIENT

DRUGS (4)
  1. RIBAVIRIN [Suspect]
     Indication: HEPATITIS C
     Dosage: UNK UNK, UNKNOWN
     Route: 065
     Dates: start: 20120420
  2. PEG-INTRON [Suspect]
     Indication: HEPATITIS C
     Dosage: 96 MICROGRAM PER KILOGRAM, QW
     Route: 042
     Dates: start: 20120420
  3. OMEPRAZOLE [Concomitant]
     Dosage: 20 MG, UNK
  4. VICTRELIS [Suspect]
     Indication: HEPATITIS C
     Dosage: UNK UNK, UNKNOWN
     Route: 065
     Dates: start: 20120518

REACTIONS (14)
  - MEMORY IMPAIRMENT [None]
  - ANXIETY [None]
  - HYPERTHYROIDISM [None]
  - MOOD ALTERED [None]
  - CONFUSIONAL STATE [None]
  - BACK PAIN [None]
  - HEADACHE [None]
  - CHILLS [None]
  - FEELING ABNORMAL [None]
  - IRRITABILITY [None]
  - NAUSEA [None]
  - DEHYDRATION [None]
  - PAIN [None]
  - FATIGUE [None]
